FAERS Safety Report 23132108 (Version 1)
Quarter: 2023Q4

REPORT INFORMATION
  Report Type: Report from Study
  Country: BR (occurrence: BR)
  Receive Date: 20231101
  Receipt Date: 20231101
  Transmission Date: 20240110
  Serious: Yes (Other)
  Sender: FDA-Public Use
  Company Number: BR-002147023-NVSC2023BR231801

PATIENT
  Sex: Female
  Weight: 69 kg

DRUGS (11)
  1. IMATINIB [Suspect]
     Active Substance: IMATINIB
     Indication: Systemic mastocytosis
     Dosage: UNK
     Route: 048
  2. CELEBRA [Concomitant]
     Active Substance: CELECOXIB
     Indication: Pain
     Dosage: 1 DOSAGE FORM (WHEN NECESSARY) (3 YEARS AGO)
     Route: 048
  3. CLONAZEPAM [Concomitant]
     Active Substance: CLONAZEPAM
     Indication: Sleep disorder therapy
     Dosage: HALF A TABLET, QD (3 YEARS  AGO)
     Route: 048
  4. HYDROXYZINE [Concomitant]
     Active Substance: HYDROXYZINE HYDROCHLORIDE
     Indication: Pain
     Dosage: 1 DOSAGE FORM, AT NIGHT (5 YEARS AGO)
     Route: 048
  5. LORATADINE [Concomitant]
     Active Substance: LORATADINE
     Indication: Pain
     Dosage: 1 DOSAGE FORM (IN THE MORNING) (5 YEARS AGO)
     Route: 048
  6. CHOLECALCIFEROL [Concomitant]
     Active Substance: CHOLECALCIFEROL
     Indication: Vitamin supplementation
     Dosage: 50 DROPS, ON THE FIRST WEEK (3 MONTHS AGO)
     Route: 048
  7. CHOLECALCIFEROL [Concomitant]
     Active Substance: CHOLECALCIFEROL
     Dosage: 7 DROPS, PER WEEK (AFTER USING 5 DROPS IN THE 1ST)
     Route: 048
  8. INTERFERON [Concomitant]
     Active Substance: INTERFERON
     Indication: Systemic mastocytosis
     Dosage: 3 INJECTIONS/ 2 INJECTIONS, PER WEEK
     Route: 065
  9. INTERFERON [Concomitant]
     Active Substance: INTERFERON
     Dosage: 2 INJECTIONS, PER WEEK (STOPPED AFTER 6 MONTHS)
     Route: 065
  10. PREDNISONE [Concomitant]
     Active Substance: PREDNISONE
     Indication: Pain
     Dosage: 1 DOSAGE FORM, WHEN NECESSARY (AROUND 2 YEARS AGO)
     Route: 048
  11. ATORVASTATIN [Concomitant]
     Active Substance: ATORVASTATIN
     Indication: Product used for unknown indication
     Dosage: UNK
     Route: 065

REACTIONS (20)
  - Tinnitus [Recovered/Resolved]
  - Hypoaesthesia [Recovered/Resolved]
  - Abdominal distension [Recovered/Resolved]
  - Decreased appetite [Recovered/Resolved]
  - Malaise [Recovered/Resolved]
  - Aggression [Recovered/Resolved]
  - Headache [Recovered/Resolved]
  - Abdominal pain [Recovered/Resolved]
  - Pain [Recovered/Resolved]
  - Weight decreased [Recovered/Resolved]
  - Blood pressure decreased [Recovered/Resolved]
  - Diarrhoea [Recovered/Resolved]
  - Vomiting [Recovered/Resolved]
  - Abdominal pain [Recovered/Resolved]
  - Pain [Recovered/Resolved]
  - Headache [Recovered/Resolved]
  - Fall [Unknown]
  - Ligament sprain [Unknown]
  - Insomnia [Unknown]
  - Joint swelling [Unknown]
